FAERS Safety Report 15004197 (Version 1)
Quarter: 2018Q2

REPORT INFORMATION
  Report Type: Spontaneous
  Country: US (occurrence: US)
  Receive Date: 20180524
  Receipt Date: 20180524
  Transmission Date: 20180711
  Serious: Yes (Other)
  Sender: FDA-Public Use
  Company Number: None

PATIENT
  Age: 47 Year
  Sex: Female
  Weight: 79.65 kg

DRUGS (5)
  1. OTEZLA [Suspect]
     Active Substance: APREMILAST
     Indication: PSORIATIC ARTHROPATHY
     Route: 048
     Dates: start: 20180105, end: 20180106
  2. METHOTREXATE. [Concomitant]
     Active Substance: METHOTREXATE
     Dates: start: 20170207
  3. FOLATE [Concomitant]
     Active Substance: FOLATE SODIUM
     Dates: start: 20150301
  4. DILANTIN [Concomitant]
     Active Substance: PHENYTOIN
     Dates: start: 20070101
  5. NAPROXEN. [Concomitant]
     Active Substance: NAPROXEN
     Dates: start: 20150310

REACTIONS (3)
  - Seizure [None]
  - Feeling abnormal [None]
  - Throat irritation [None]

NARRATIVE: CASE EVENT DATE: 20180115
